FAERS Safety Report 13910693 (Version 1)
Quarter: 2017Q3

REPORT INFORMATION
  Report Type: Spontaneous
  Country: US (occurrence: None)
  Receive Date: 20170822
  Receipt Date: 20170822
  Transmission Date: 20171127
  Serious: Yes (Disabling)
  Sender: FDA-Public Use
  Company Number: None

PATIENT
  Age: 89 Year
  Sex: Female
  Weight: 66.68 kg

DRUGS (17)
  1. CLARITIN [Concomitant]
     Active Substance: LORATADINE
  2. COQ10 [Concomitant]
     Active Substance: UBIDECARENONE
  3. FISH OIL [Concomitant]
     Active Substance: FISH OIL
  4. PROBIOTICS [Concomitant]
     Active Substance: PROBIOTICS NOS
  5. METAMUCIL [Concomitant]
     Active Substance: PLANTAGO SEED
  6. TYLENOL PM [Concomitant]
     Active Substance: ACETAMINOPHEN\DIPHENHYDRAMINE
  7. ELIQUIS [Suspect]
     Active Substance: APIXABAN
     Indication: CEREBROVASCULAR ACCIDENT
     Dosage: TWO PILLS A DAY, BY MOUTH
     Route: 048
     Dates: start: 20161025
  8. PRESERVISION [Concomitant]
     Active Substance: MINERALS\VITAMINS
  9. BIOTIN [Concomitant]
     Active Substance: BIOTIN
  10. METOPROLOL. [Concomitant]
     Active Substance: METOPROLOL
  11. ROSUVASTATIN (CRESTOR GENERIC) [Concomitant]
  12. CENTRUM SILVER [Concomitant]
     Active Substance: MINERALS\VITAMINS
  13. OSTEO BI-FLEX [Concomitant]
     Active Substance: CHONDROITIN SULFATE A\GLUCOSAMINE
  14. EYE DROPS (SYSTANE + NAPHCON) [Concomitant]
  15. RANEXA [Concomitant]
     Active Substance: RANOLAZINE
  16. CINNAMON. [Concomitant]
     Active Substance: CINNAMON
  17. TUMS [Concomitant]
     Active Substance: CALCIUM CARBONATE

REACTIONS (1)
  - Blindness [None]

NARRATIVE: CASE EVENT DATE: 20161026
